FAERS Safety Report 22388169 (Version 1)
Quarter: 2023Q2

REPORT INFORMATION
  Report Type: Spontaneous
  Country: US (occurrence: US)
  Receive Date: 20230531
  Receipt Date: 20230531
  Transmission Date: 20230722
  Serious: No
  Sender: FDA-Public Use
  Company Number: US-SA-SAC20230530000715

PATIENT
  Age: 70 Year
  Sex: Female
  Weight: 80.7 kg

DRUGS (31)
  1. DUPIXENT [Suspect]
     Active Substance: DUPILUMAB
     Indication: Dermatitis atopic
     Dosage: 300 MG, QOW
     Route: 058
     Dates: start: 20221229
  2. LYRICA [Concomitant]
     Active Substance: PREGABALIN
  3. FLONASE ALLERGY RELIEF [Concomitant]
     Active Substance: FLUTICASONE PROPIONATE
  4. MELATONIN [Concomitant]
     Active Substance: MELATONIN
  5. COENZYME Q10 [Concomitant]
     Active Substance: DIETARY SUPPLEMENT\UBIDECARENONE
  6. VITAMIN C [Concomitant]
     Active Substance: ASCORBIC ACID
  7. VITAMIN D3 [Concomitant]
     Active Substance: CHOLECALCIFEROL
  8. VITAMIN B12 [Concomitant]
     Active Substance: CYANOCOBALAMIN
  9. HERBALS\WITHANIA SOMNIFERA ROOT [Concomitant]
     Active Substance: HERBALS\WITHANIA SOMNIFERA ROOT
  10. TACROLIMUS [Concomitant]
     Active Substance: TACROLIMUS
  11. LIDOCAINE [Concomitant]
     Active Substance: LIDOCAINE
  12. DICLOFENAC SODIUM [Concomitant]
     Active Substance: DICLOFENAC SODIUM
  13. CLOBETASOL [Concomitant]
     Active Substance: CLOBETASOL
  14. VITAMINS NOS [Concomitant]
     Active Substance: VITAMINS
  15. TRAMADOL HCL [Concomitant]
     Active Substance: TRAMADOL HYDROCHLORIDE
  16. MORPHINE SULFATE [Concomitant]
     Active Substance: MORPHINE SULFATE
  17. TYLENOL [Concomitant]
     Active Substance: ACETAMINOPHEN
  18. LEVOCETIRIZINE DIHYDROCHLORIDE [Concomitant]
     Active Substance: LEVOCETIRIZINE DIHYDROCHLORIDE
  19. LEXAPRO [Concomitant]
     Active Substance: ESCITALOPRAM OXALATE
  20. HYDROXYZINE HYDROCHLORIDE [Concomitant]
     Active Substance: HYDROXYZINE HYDROCHLORIDE
  21. LORAZEPAM [Concomitant]
     Active Substance: LORAZEPAM
  22. LANSOPRAZOLE [Concomitant]
     Active Substance: LANSOPRAZOLE
  23. HYDROCHLOROTHIAZIDE [Concomitant]
     Active Substance: HYDROCHLOROTHIAZIDE
  24. CANNABIDIOL\HERBALS [Concomitant]
     Active Substance: CANNABIDIOL\HERBALS
  25. NOW LIVER REFRESH [Concomitant]
  26. PROBIOTIC 10 BILLION DAILY MAINTENANCE [Concomitant]
  27. MAGNESIUM [Concomitant]
     Active Substance: MAGNESIUM
  28. ALOE VERA LEAF [Concomitant]
     Active Substance: ALOE VERA LEAF
  29. LIDOCAINE [Concomitant]
     Active Substance: LIDOCAINE
  30. CINNAMON\HERBALS [Concomitant]
     Active Substance: CINNAMON\HERBALS
  31. LEVOTHYROXINE [Concomitant]
     Active Substance: LEVOTHYROXINE

REACTIONS (2)
  - Gastrointestinal pain [Not Recovered/Not Resolved]
  - Condition aggravated [Not Recovered/Not Resolved]
